FAERS Safety Report 6025017-5 (Version None)
Quarter: 2008Q4

REPORT INFORMATION
  Report Type: 
  Country: None (occurrence: None)
  Receive Date: 20081231
  Receipt Date: 20081216
  Transmission Date: 20090506
  Serious: Yes (Other)
  Sender: FDA-Public Use
  Company Number: FR-PFIZER INC-2008158083

PATIENT

DRUGS (2)
  1. CHAMPIX [Suspect]
     Dosage: UNK
  2. LYRICA [Interacting]
     Dosage: UNK

REACTIONS (4)
  - DRUG INTERACTION [None]
  - INSOMNIA [None]
  - NERVOUS SYSTEM DISORDER [None]
  - VOMITING [None]
